FAERS Safety Report 25167776 (Version 1)
Quarter: 2025Q2

REPORT INFORMATION
  Report Type: Spontaneous
  Country: US (occurrence: US)
  Receive Date: 20250407
  Receipt Date: 20250407
  Transmission Date: 20250716
  Serious: Yes (Death, Life-Threatening, Other)
  Sender: AMGEN
  Company Number: US-AMGEN-USASP2025064152

PATIENT
  Age: 57 Year
  Sex: Male

DRUGS (1)
  1. PREDNISONE [Suspect]
     Active Substance: PREDNISONE
     Indication: Glomerulonephritis
     Route: 065

REACTIONS (10)
  - Multiple organ dysfunction syndrome [Fatal]
  - Endocarditis [Fatal]
  - Cardiogenic shock [Unknown]
  - Shock [Unknown]
  - Cardiac failure congestive [Unknown]
  - Bartonella test positive [Unknown]
  - Blood creatinine increased [Unknown]
  - Aortic valve thickening [Unknown]
  - Lung opacity [Unknown]
  - Off label use [Unknown]
